FAERS Safety Report 5941574-9 (Version None)
Quarter: 2008Q4

REPORT INFORMATION
  Report Type: 
  Country: None (occurrence: None)
  Receive Date: 20081105
  Receipt Date: 20081031
  Transmission Date: 20090506
  Serious: Yes (Other)
  Sender: FDA-Public Use
  Company Number: US-ASTRAZENECA-2008UW24345

PATIENT
  Age: 57 Year
  Sex: Female
  Weight: 73.5 kg

DRUGS (10)
  1. ATENOLOL [Suspect]
     Indication: HEART RATE INCREASED
     Route: 048
     Dates: start: 20070101
  2. TOPROL-XL [Suspect]
     Indication: HEART RATE INCREASED
     Route: 048
     Dates: start: 20070101, end: 20070101
  3. CHANTIX [Suspect]
     Indication: SMOKING CESSATION THERAPY
     Route: 048
     Dates: start: 20070801, end: 20070101
  4. MORPHINE [Suspect]
  5. CYCLOBENZAPRINE HCL [Concomitant]
  6. PREMARIN [Concomitant]
  7. SEROQUEL [Concomitant]
     Route: 048
  8. ACTONEL [Concomitant]
     Indication: OSTEOPOROSIS
  9. ARTHROTEC [Concomitant]
     Indication: EXOSTOSIS
  10. ARTHROTEC [Concomitant]
     Indication: ARTHRITIS

REACTIONS (4)
  - ALOPECIA [None]
  - FATIGUE [None]
  - HEART RATE INCREASED [None]
  - WEIGHT INCREASED [None]
